FAERS Safety Report 21688566 (Version 1)
Quarter: 2022Q4

REPORT INFORMATION
  Report Type: Report from Study
  Country: CA (occurrence: CA)
  Receive Date: 20221206
  Receipt Date: 20221206
  Transmission Date: 20230113
  Serious: Yes (Other)
  Sender: FDA-Public Use
  Company Number: CA-PFIZER INC-202200595601

PATIENT
  Age: 13 Year
  Sex: Male

DRUGS (9)
  1. METHOTREXATE SODIUM [Suspect]
     Active Substance: METHOTREXATE SODIUM
     Dosage: 5 MG
     Route: 058
  2. REMICADE [Suspect]
     Active Substance: INFLIXIMAB
     Indication: Hidradenitis
     Dosage: 400 MG, 1 EVERY 4 WEEKS
     Route: 042
  3. REMICADE [Suspect]
     Active Substance: INFLIXIMAB
     Dosage: 400 MG, 1 EVERY 4 WEEKS
     Route: 041
  4. REMICADE [Suspect]
     Active Substance: INFLIXIMAB
     Indication: Hidradenitis
     Dosage: 400 MG
     Route: 042
  5. REMICADE [Suspect]
     Active Substance: INFLIXIMAB
     Dosage: 400 MG
     Route: 041
  6. REMICADE [Suspect]
     Active Substance: INFLIXIMAB
     Dosage: 600 MG
     Route: 041
  7. SULFASALAZINE [Concomitant]
     Active Substance: SULFASALAZINE
     Dosage: 750 MG
     Route: 065
  8. SULFASALAZINE [Concomitant]
     Active Substance: SULFASALAZINE
     Dosage: UNK
     Route: 065
  9. CYPROHEPTADINE [Concomitant]
     Active Substance: CYPROHEPTADINE
     Dosage: 4 MG
     Route: 065

REACTIONS (9)
  - Fungal infection [Not Recovered/Not Resolved]
  - Anti-saccharomyces cerevisiae antibody [Not Recovered/Not Resolved]
  - Hidradenitis [Not Recovered/Not Resolved]
  - Malaise [Not Recovered/Not Resolved]
  - Pallor [Not Recovered/Not Resolved]
  - Blood iron decreased [Not Recovered/Not Resolved]
  - Drug ineffective [Not Recovered/Not Resolved]
  - Drug level decreased [Not Recovered/Not Resolved]
  - Pyoderma gangrenosum [Not Recovered/Not Resolved]
